FAERS Safety Report 6049481-0 (Version None)
Quarter: 2009Q1

REPORT INFORMATION
  Report Type: 
  Country: None (occurrence: None)
  Receive Date: 20090121
  Receipt Date: 20090113
  Transmission Date: 20090719
  Serious: Yes (Life-Threatening)
  Sender: FDA-Public Use
  Company Number: 2009-189404-NL

PATIENT
  Age: 7 Year
  Sex: Male

DRUGS (8)
  1. VECURONIUM BROMIDE [Suspect]
     Indication: INDUCTION OF ANAESTHESIA
     Dosage: INTRAVENOUS (NOS)
     Route: 042
  2. THIOPENTAL SODIUM [Suspect]
     Indication: INDUCTION OF ANAESTHESIA
  3. FENTANYL CITRATE [Suspect]
     Indication: INDUCTION OF ANAESTHESIA
  4. OXYGEN [Suspect]
     Indication: MAINTENANCE OF ANAESTHESIA
     Dosage: RESPIRATORY (INHALATION)
     Route: 055
  5. NITROUS OXIDE [Suspect]
     Indication: MAINTENANCE OF ANAESTHESIA
     Dosage: RESPIRATORY (INHALATION)
     Route: 055
  6. ISOFLURANE [Suspect]
     Indication: MAINTENANCE OF ANAESTHESIA
     Dosage: RESPIRATORY (INHALATION)
     Route: 055
  7. CHEMOTHERAPY [Concomitant]
  8. RADIATION THERAPY [Concomitant]

REACTIONS (11)
  - CARDIAC ARREST [None]
  - DRUG RESISTANCE [None]
  - ELECTROCARDIOGRAM ST-T CHANGE [None]
  - HAEMODYNAMIC INSTABILITY [None]
  - METABOLIC ACIDOSIS [None]
  - PERITONEAL DIALYSIS [None]
  - RENAL IMPAIRMENT [None]
  - SUPRAVENTRICULAR EXTRASYSTOLES [None]
  - TUMOUR LYSIS SYNDROME [None]
  - VENTRICULAR FIBRILLATION [None]
  - VENTRICULAR TACHYCARDIA [None]
